FAERS Safety Report 8452352-3 (Version None)
Quarter: 2012Q2

REPORT INFORMATION
  Report Type: 
  Country: None (occurrence: None)
  Receive Date: 20120620
  Receipt Date: 20120510
  Transmission Date: 20120825
  Serious: No
  Sender: FDA-Public Use
  Company Number: US-ASTRAZENECA-2012SE30300

PATIENT
  Age: 74 Year
  Sex: Female
  Weight: 59.9 kg

DRUGS (4)
  1. TOPROL-XL [Suspect]
     Indication: ARRHYTHMIA
     Route: 048
  2. TOPROL-XL [Suspect]
     Indication: PALPITATIONS
     Route: 048
  3. COZAAR [Suspect]
     Indication: HYPERTENSION
     Route: 065
  4. TOPROL-XL [Suspect]
     Indication: HYPERTENSION
     Route: 048

REACTIONS (3)
  - DANDRUFF [None]
  - ALOPECIA [None]
  - BLEPHARITIS [None]
